FAERS Safety Report 8912306 (Version 2)
Quarter: 2013Q1

REPORT INFORMATION
  Report Type: Report from Study
  Country: JP (occurrence: JP)
  Receive Date: 20121116
  Receipt Date: 20130123
  Transmission Date: 20140127
  Serious: Yes (Other)
  Sender: FDA-Public Use
  Company Number: JP-VERTEX PHARMACEUTICAL INC.-AE-2012-006053

PATIENT
  Age: 44 Year
  Sex: Male

DRUGS (8)
  1. VX-950 (TELAPREVIR) [Suspect]
     Indication: CHRONIC HEPATITIS C
     Dosage: 2250 MG, QD
     Route: 048
     Dates: start: 20120113, end: 20120223
  2. VX-950 (TELAPREVIR) [Suspect]
     Dosage: 1500 MG, QD
     Route: 048
     Dates: start: 20120224, end: 20120406
  3. RIBAVIRIN [Suspect]
     Indication: CHRONIC HEPATITIS C
     Dosage: 800 MG, QD
     Route: 048
     Dates: start: 20120113, end: 20120223
  4. RIBAVIRIN [Suspect]
     Dosage: 600 MG, QD
     Route: 048
     Dates: start: 20120224, end: 20120322
  5. RIBAVIRIN [Suspect]
     Dosage: 400 MG, QD
     Route: 048
     Dates: start: 20120323, end: 20120620
  6. PEGINTERFERON ALFA-2B [Suspect]
     Indication: CHRONIC HEPATITIS C
     Dosage: 1.52 ?G/KG, QW
     Route: 058
     Dates: start: 20120113, end: 20120330
  7. PEGINTERFERON ALFA-2B [Suspect]
     Dosage: 1.27 ?G/KG, QW
     Route: 058
     Dates: start: 20120406, end: 20120622
  8. LOXOPROFEN [Concomitant]
     Dosage: 60 MG, PRN
     Route: 048
     Dates: start: 20120113

REACTIONS (1)
  - White blood cell count decreased [Recovered/Resolved]
